FAERS Safety Report 18095925 (Version 1)
Quarter: 2020Q3

REPORT INFORMATION
  Report Type: Spontaneous
  Country: GB (occurrence: GB)
  Receive Date: 20200731
  Receipt Date: 20200731
  Transmission Date: 20201103
  Serious: Yes (Disabling)
  Sender: FDA-Public Use
  Company Number: GB-PFIZER INC-2020286400

PATIENT
  Age: 60 Year
  Sex: Female
  Weight: 50 kg

DRUGS (1)
  1. LYRICA [Suspect]
     Active Substance: PREGABALIN
     Indication: NEURALGIA
     Dosage: 150 MG, 1X/DAY
     Route: 048
     Dates: start: 201810, end: 20200704

REACTIONS (10)
  - Diarrhoea [Unknown]
  - Balance disorder [Recovered/Resolved]
  - Vision blurred [Recovering/Resolving]
  - Hypoacusis [Unknown]
  - Headache [Not Recovered/Not Resolved]
  - Hyperaesthesia teeth [Unknown]
  - Withdrawal syndrome [Unknown]
  - Amnesia [Not Recovered/Not Resolved]
  - Illness [Unknown]
  - Feeling abnormal [Not Recovered/Not Resolved]

NARRATIVE: CASE EVENT DATE: 201810
